FAERS Safety Report 11716915 (Version 3)
Quarter: 2016Q1

REPORT INFORMATION
  Report Type: Report from Study
  Country: US (occurrence: US)
  Receive Date: 20151109
  Receipt Date: 20160215
  Transmission Date: 20160525
  Serious: Yes (Hospitalization)
  Sender: FDA-Public Use
  Company Number: US-BAYER-2015-458055

PATIENT
  Age: 67 Year
  Sex: Male

DRUGS (2)
  1. NEXAVAR [Suspect]
     Active Substance: SORAFENIB
     Indication: HEAD AND NECK CANCER
     Dosage: 600 MG DAILY DOSE (2X200 MG QAM AND 1X200 MG QPM
     Route: 048
     Dates: start: 20150526
  2. NEXAVAR [Suspect]
     Active Substance: SORAFENIB
     Indication: HEAD AND NECK CANCER
     Dosage: 200 MG, BID
     Route: 048

REACTIONS (3)
  - Gastrointestinal disorder [None]
  - Blood test abnormal [Unknown]
  - Off label use [None]
